FAERS Safety Report 4759223-4 (Version None)
Quarter: 2005Q3

REPORT INFORMATION
  Report Type: 
  Country: None (occurrence: None)
  Receive Date: 20050831
  Receipt Date: 20050810
  Transmission Date: 20060218
  Serious: Yes (Hospitalization)
  Sender: FDA-Public Use
  Company Number: JP_050306099

PATIENT
  Age: 63 Year
  Sex: Female
  Weight: 45 kg

DRUGS (7)
  1. ZYPREXA [Suspect]
     Indication: SCHIZOPHRENIA
     Dosage: 10 MG DAY
     Dates: start: 20040514, end: 20050203
  2. CHLORPROMAZINE [Concomitant]
  3. SEPAZON (CLOXAZOLAM) [Concomitant]
  4. DORAL [Concomitant]
  5. DIOVAN [Concomitant]
  6. THEO-DUR [Concomitant]
  7. ADALAT L (NIFEDIPINE PA) [Concomitant]

REACTIONS (2)
  - DEMENTIA [None]
  - ROAD TRAFFIC ACCIDENT [None]
